FAERS Safety Report 16235117 (Version 2)
Quarter: 2019Q2

REPORT INFORMATION
  Report Type: Spontaneous
  Country: US (occurrence: US)
  Receive Date: 20190424
  Receipt Date: 20190627
  Transmission Date: 20190711
  Serious: Yes (Hospitalization, Other)
  Sender: FDA-Public Use
  Company Number: US-NOVOPROD-658227

PATIENT
  Age: 56 Year
  Sex: Male
  Weight: 99.3 kg

DRUGS (8)
  1. LEVEMIR [Concomitant]
     Active Substance: INSULIN DETEMIR
     Indication: TYPE 2 DIABETES MELLITUS
     Dosage: 58 IU, QD HS
     Route: 058
  2. NOVOLOG [Concomitant]
     Active Substance: INSULIN ASPART
     Indication: TYPE 2 DIABETES MELLITUS
     Dosage: 16-22 IU TID
     Route: 058
  3. VICTOZA [Suspect]
     Active Substance: LIRAGLUTIDE
     Dosage: 0.6 MG
     Route: 058
     Dates: start: 20190601
  4. NOVOLOG [Concomitant]
     Active Substance: INSULIN ASPART
     Dosage: 14 IU BEFORE BREAKFAST AND LUNCH, 120 IU BEFORE DINNER WITH SLIDING SCALE
  5. LEVEMIR [Concomitant]
     Active Substance: INSULIN DETEMIR
     Dosage: 56 IU, QD HS DOWN TO 54 IF NEEDED
     Route: 058
  6. GLUCOPHAGE XR [Concomitant]
     Active Substance: METFORMIN HYDROCHLORIDE
     Indication: TYPE 2 DIABETES MELLITUS
     Dosage: 500 MG, BID
     Route: 048
  7. VICTOZA [Suspect]
     Active Substance: LIRAGLUTIDE
     Indication: TYPE 2 DIABETES MELLITUS
     Dosage: UNK
     Route: 058
     Dates: start: 20130116, end: 2016
  8. VICTOZA [Suspect]
     Active Substance: LIRAGLUTIDE
     Dosage: 1.8 MG, QD HS
     Route: 058
     Dates: start: 20160512, end: 20190216

REACTIONS (6)
  - Glycosylated haemoglobin increased [Not Recovered/Not Resolved]
  - Ischaemic cardiomyopathy [Recovering/Resolving]
  - Treatment noncompliance [Unknown]
  - Hypoglycaemia [Recovered/Resolved]
  - White blood cell count decreased [Recovering/Resolving]
  - Photopsia [Recovered/Resolved]

NARRATIVE: CASE EVENT DATE: 2019
